FAERS Safety Report 24606834 (Version 2)
Quarter: 2025Q1

REPORT INFORMATION
  Report Type: Spontaneous
  Country: CA (occurrence: CA)
  Receive Date: 20241112
  Receipt Date: 20250129
  Transmission Date: 20250409
  Serious: Yes (Hospitalization, Other)
  Sender: SANOFI AVENTIS
  Company Number: CA-SA-2024SA324759

PATIENT
  Age: 83 Year
  Sex: Male
  Weight: 51 kg

DRUGS (26)
  1. LOVENOX [Suspect]
     Active Substance: ENOXAPARIN SODIUM
     Indication: Thrombosis prophylaxis
     Dosage: 40 MG, QD
     Route: 058
     Dates: start: 20230710, end: 20230725
  2. ASPIRIN [Suspect]
     Active Substance: ASPIRIN
     Indication: Arteriosclerosis coronary artery
     Dosage: 80 MG, QD
     Route: 048
     Dates: start: 20190911, end: 20230725
  3. ASPIRIN [Suspect]
     Active Substance: ASPIRIN
     Indication: Mast cell activation syndrome
  4. ACETAMINOPHEN [Concomitant]
     Active Substance: ACETAMINOPHEN
  5. ATORVASTATIN [Concomitant]
     Active Substance: ATORVASTATIN
  6. CALCIUM CARBONATE [Concomitant]
     Active Substance: CALCIUM CARBONATE
  7. CIPROFLOXACIN [Concomitant]
     Active Substance: CIPROFLOXACIN
  8. DILTIAZEM [Concomitant]
     Active Substance: DILTIAZEM
  9. FINASTERIDE [Concomitant]
     Active Substance: FINASTERIDE
  10. HALOPERIDOL [Concomitant]
     Active Substance: HALOPERIDOL
  11. HYDROCHLOROTHIAZIDE [Concomitant]
     Active Substance: HYDROCHLOROTHIAZIDE
  12. LIDOCAINE [Concomitant]
     Active Substance: LIDOCAINE
     Route: 061
  13. LORAZEPAM [Concomitant]
     Active Substance: LORAZEPAM
  14. MAGNESIUM OXIDE [Concomitant]
     Active Substance: MAGNESIUM OXIDE
  15. MELATONIN [Concomitant]
     Active Substance: MELATONIN
  16. MORPHINE [Concomitant]
     Active Substance: MORPHINE
  17. PERINDOPRIL [Concomitant]
     Active Substance: PERINDOPRIL
  18. POLYETHYLENE GLYCOL 3350 [Concomitant]
     Active Substance: POLYETHYLENE GLYCOL 3350
  19. POTASSIUM [Concomitant]
     Active Substance: POTASSIUM
  20. PREGABALIN [Concomitant]
     Active Substance: PREGABALIN
  21. TAMSULOSIN [Concomitant]
     Active Substance: TAMSULOSIN
  22. TRAVOFIX [TIMOLOL;TRAVOPROST] [Concomitant]
  23. SULFAMETHOXAZOLE\TRIMETHOPRIM [Concomitant]
     Active Substance: SULFAMETHOXAZOLE\TRIMETHOPRIM
  24. VITAMIN B1 [Concomitant]
     Active Substance: THIAMINE HYDROCHLORIDE
  25. VITAMIN B12 [Concomitant]
     Active Substance: CYANOCOBALAMIN
  26. VITAMIN D NOS [Concomitant]
     Active Substance: CHOLECALCIFEROL\ERGOCALCIFEROL
     Route: 065

REACTIONS (2)
  - Ulcer [Recovered/Resolved]
  - Upper gastrointestinal haemorrhage [Recovered/Resolved]

NARRATIVE: CASE EVENT DATE: 20230725
